FAERS Safety Report 6747452-X (Version None)
Quarter: 2010Q2

REPORT INFORMATION
  Report Type: 
  Country: None (occurrence: None)
  Receive Date: 20100528
  Receipt Date: 20100519
  Transmission Date: 20101027
  Serious: Yes (Hospitalization, Other)
  Sender: FDA-Public Use
  Company Number: US-JNJFOC-20100508300

PATIENT
  Sex: Female
  Weight: 72.58 kg

DRUGS (4)
  1. REMICADE [Suspect]
     Indication: CROHN'S DISEASE
     Route: 042
  2. REMICADE [Suspect]
     Dosage: INITIATED 4 YEARS AGO
     Route: 042
  3. REMICADE [Suspect]
     Route: 042
  4. NUVARING [Concomitant]

REACTIONS (3)
  - BACK PAIN [None]
  - HYPOAESTHESIA [None]
  - PAIN IN EXTREMITY [None]
